FAERS Safety Report 8162143-9 (Version None)
Quarter: 2012Q1

REPORT INFORMATION
  Report Type: 
  Country: None (occurrence: None)
  Receive Date: 20120224
  Receipt Date: 20110824
  Transmission Date: 20120608
  Serious: No
  Sender: FDA-Public Use
  Company Number: US-BRISTOL-MYERS SQUIBB COMPANY-15998966

PATIENT
  Age: 86 Year
  Sex: Female

DRUGS (2)
  1. GLYBURIDE [Concomitant]
  2. METFORMIN HCL [Suspect]
     Indication: DIABETES MELLITUS
     Dosage: FREQUENCY:2 OR 3 TIMES A DAY
     Route: 048
     Dates: start: 19980101

REACTIONS (1)
  - BACK DISORDER [None]
